FAERS Safety Report 7201134-9 (Version None)
Quarter: 2010Q4

REPORT INFORMATION
  Report Type: 
  Country: None (occurrence: None)
  Receive Date: 20101229
  Receipt Date: 20101217
  Transmission Date: 20110411
  Serious: No
  Sender: FDA-Public Use
  Company Number: US-BIOGENIDEC-2010BI044763

PATIENT
  Sex: Female

DRUGS (1)
  1. TYSABRI [Suspect]
     Indication: MULTIPLE SCLEROSIS
     Route: 042
     Dates: start: 20100806

REACTIONS (11)
  - APPLICATION SITE BURN [None]
  - DERMATITIS ALLERGIC [None]
  - DIZZINESS [None]
  - DYSGRAPHIA [None]
  - FATIGUE [None]
  - GAIT DISTURBANCE [None]
  - HERPES ZOSTER [None]
  - HYPOPNOEA [None]
  - MUSCULAR WEAKNESS [None]
  - PANIC ATTACK [None]
  - RESPIRATORY MUSCLE WEAKNESS [None]
